FAERS Safety Report 14379056 (Version 17)
Quarter: 2019Q3

REPORT INFORMATION
  Report Type: Report from Study
  Country: DE (occurrence: DE)
  Receive Date: 20180112
  Receipt Date: 20190714
  Transmission Date: 20191004
  Serious: Yes (Life-Threatening, Hospitalization, Other)
  Sender: FDA-Public Use
  Company Number: DE-BRISTOL-MYERS SQUIBB COMPANY-BMS-2017-066408

PATIENT
  Age: 66 Year
  Sex: Male

DRUGS (25)
  1. NIVOLUMAB [Suspect]
     Active Substance: NIVOLUMAB
     Indication: PRODUCT USED FOR UNKNOWN INDICATION
     Dosage: 298.2 MG, Q2WK
     Route: 042
     Dates: start: 20171208
  2. NIVOLUMAB [Suspect]
     Active Substance: NIVOLUMAB
     Indication: PRODUCT USED FOR UNKNOWN INDICATION
     Dosage: UNK
     Route: 042
     Dates: start: 20180223
  3. NIVOLUMAB [Suspect]
     Active Substance: NIVOLUMAB
     Indication: PRODUCT USED FOR UNKNOWN INDICATION
     Dosage: 240 UNK, Q2WK
     Route: 042
     Dates: start: 20180608
  4. METHYLPREDNISOLONE ACEPONATE [Concomitant]
     Active Substance: METHYLPREDNISOLONE ACEPONATE
     Indication: PRODUCT USED FOR UNKNOWN INDICATION
     Dosage: 40 MILLIGRAM
     Route: 048
     Dates: start: 20180704, end: 20180705
  5. LEVOTHYROXINE SODIUM. [Concomitant]
     Active Substance: LEVOTHYROXINE SODIUM
     Indication: PRODUCT USED FOR UNKNOWN INDICATION
     Route: 065
  6. NIVOLUMAB [Suspect]
     Active Substance: NIVOLUMAB
     Indication: PRODUCT USED FOR UNKNOWN INDICATION
     Dosage: 303.3 MG, Q2WK
     Route: 042
     Dates: start: 20171013
  7. PANTOPRAZOLE SODIUM. [Concomitant]
     Active Substance: PANTOPRAZOLE SODIUM
     Indication: PRODUCT USED FOR UNKNOWN INDICATION
     Dosage: 20 MILLIGRAM, QD
     Route: 048
     Dates: start: 20180817, end: 20190404
  8. THIAMAZOL [Concomitant]
     Active Substance: METHIMAZOLE
     Indication: PRODUCT USED FOR UNKNOWN INDICATION
     Route: 065
  9. KETOCONAZOL [Concomitant]
     Active Substance: KETOCONAZOLE
     Indication: PRODUCT USED FOR UNKNOWN INDICATION
     Route: 065
  10. NIVOLUMAB [Suspect]
     Active Substance: NIVOLUMAB
     Indication: PRODUCT USED FOR UNKNOWN INDICATION
     Dosage: 300 MG, Q2WK
     Route: 042
     Dates: start: 20171124
  11. PREDNICARBATE. [Concomitant]
     Active Substance: PREDNICARBATE
     Indication: PRODUCT USED FOR UNKNOWN INDICATION
     Route: 065
  12. NIVOLUMAB [Suspect]
     Active Substance: NIVOLUMAB
     Indication: PRODUCT USED FOR UNKNOWN INDICATION
     Dosage: 303 MG, Q2WK
     Route: 042
     Dates: start: 20171110
  13. NIVOLUMAB [Suspect]
     Active Substance: NIVOLUMAB
     Indication: PRODUCT USED FOR UNKNOWN INDICATION
     Dosage: 272.1 MG, Q2WK
     Route: 042
     Dates: start: 20180112
  14. NIVOLUMAB [Suspect]
     Active Substance: NIVOLUMAB
     Indication: PRODUCT USED FOR UNKNOWN INDICATION
     Dosage: 275.1 MG, Q2WK
     Route: 042
     Dates: start: 20180126
  15. NIVOLUMAB [Suspect]
     Active Substance: NIVOLUMAB
     Indication: MALIGNANT MELANOMA
     Dosage: 295.5 MILLIGRAM, Q2WK
     Route: 042
     Dates: start: 20170707
  16. CETIRIZINE DIHYDROCHLORIDE [Concomitant]
     Active Substance: CETIRIZINE HYDROCHLORIDE
     Indication: PRODUCT USED FOR UNKNOWN INDICATION
     Route: 065
  17. NATRIUMCHLORIDE [Concomitant]
     Active Substance: SODIUM CHLORIDE
     Indication: PRODUCT USED FOR UNKNOWN INDICATION
     Dosage: 500 MILLILITER, QD
     Route: 042
     Dates: start: 20180522, end: 20180529
  18. NIVOLUMAB [Suspect]
     Active Substance: NIVOLUMAB
     Indication: PRODUCT USED FOR UNKNOWN INDICATION
     Dosage: 299.7 MG, Q2WK
     Route: 042
     Dates: start: 20170929
  19. SODIUM CHLORIDE. [Concomitant]
     Active Substance: SODIUM CHLORIDE
     Indication: PRODUCT USED FOR UNKNOWN INDICATION
     Route: 065
  20. NATRIUMCHLORIDE [Concomitant]
     Active Substance: SODIUM CHLORIDE
     Indication: PRODUCT USED FOR UNKNOWN INDICATION
     Dosage: 1000 MILLILITER, QD
     Route: 042
     Dates: start: 20180528, end: 20180607
  21. NIVOLUMAB [Suspect]
     Active Substance: NIVOLUMAB
     Indication: PRODUCT USED FOR UNKNOWN INDICATION
     Dosage: 297 MG, Q2WK
     Route: 042
     Dates: start: 20170721, end: 20170915
  22. AMPICILLIN NATRIUM [Concomitant]
     Indication: PRODUCT USED FOR UNKNOWN INDICATION
     Route: 065
  23. NIVOLUMAB [Suspect]
     Active Substance: NIVOLUMAB
     Indication: PRODUCT USED FOR UNKNOWN INDICATION
     Dosage: 300 MG, Q2WK
     Route: 042
     Dates: start: 20171027
  24. METHYLPREDNISOLONE ACEPONATE [Concomitant]
     Active Substance: METHYLPREDNISOLONE ACEPONATE
     Indication: PRODUCT USED FOR UNKNOWN INDICATION
     Dosage: 96 MILLIGRAM, QD
     Route: 042
     Dates: start: 20180622, end: 20180703
  25. HYDROCORTISONE. [Concomitant]
     Active Substance: HYDROCORTISONE
     Indication: PRODUCT USED FOR UNKNOWN INDICATION
     Dosage: 15 MILLIGRAM
     Route: 048
     Dates: start: 20180803

REACTIONS (16)
  - Dysphonia [Recovered/Resolved]
  - Pelvic pain [Unknown]
  - Adrenal insufficiency [Recovered/Resolved]
  - Peripheral coldness [Recovered/Resolved]
  - Radiation skin injury [Recovering/Resolving]
  - Hyponatraemia [Recovered/Resolved]
  - Upper respiratory tract infection [Recovered/Resolved]
  - Erythema [Recovering/Resolving]
  - Fatigue [Recovering/Resolving]
  - Chills [Recovered/Resolved]
  - Seborrhoeic dermatitis [Recovering/Resolving]
  - Back pain [Unknown]
  - Pruritus [Recovered/Resolved]
  - Muscle spasms [Recovered/Resolved]
  - Adrenalitis [Recovered/Resolved]
  - Thyroiditis [Recovering/Resolving]

NARRATIVE: CASE EVENT DATE: 20170710
